FAERS Safety Report 12378674 (Version 1)
Quarter: 2016Q2

REPORT INFORMATION
  Report Type: Report from Study
  Country: US (occurrence: US)
  Receive Date: 20160517
  Receipt Date: 20160517
  Transmission Date: 20160815
  Serious: Yes (Death, Hospitalization, Other)
  Sender: FDA-Public Use
  Company Number: US-BRISTOL-MYERS SQUIBB COMPANY-BMS-2016-037763

PATIENT
  Age: 72 Year
  Sex: Female
  Weight: 70.4 kg

DRUGS (2)
  1. NIVOLUMAB [Suspect]
     Active Substance: NIVOLUMAB
     Indication: SQUAMOUS CELL CARCINOMA OF LUNG
     Dosage: 212 MG, UNK
     Route: 042
     Dates: start: 20160205
  2. NIVOLUMAB [Suspect]
     Active Substance: NIVOLUMAB
     Dosage: 212 MG, UNK
     Route: 042
     Dates: start: 20160219

REACTIONS (1)
  - Lung infection [Fatal]

NARRATIVE: CASE EVENT DATE: 20160501
